FAERS Safety Report 6021764-X (Version None)
Quarter: 2008Q4

REPORT INFORMATION
  Report Type: 
  Country: None (occurrence: None)
  Receive Date: 20081229
  Receipt Date: 20081218
  Transmission Date: 20090506
  Serious: Yes (Other)
  Sender: FDA-Public Use
  Company Number: FR-JNJFOC-20081006829

PATIENT
  Sex: Male
  Weight: 64 kg

DRUGS (8)
  1. REMINYL LP [Suspect]
     Indication: DEMENTIA ALZHEIMER'S TYPE
     Route: 048
  2. DIGOXIN [Suspect]
     Indication: ATRIAL FIBRILLATION
     Route: 048
  3. LASILIX [Concomitant]
     Indication: HYPERTENSION
  4. PREVISCAN [Concomitant]
     Indication: ATRIAL FIBRILLATION
  5. COZAAR [Concomitant]
     Indication: HYPERTENSION
  6. ELISOR [Concomitant]
     Indication: HYPERCHOLESTEROLAEMIA
  7. BUFLOMEDIL [Concomitant]
     Indication: RAYNAUD'S PHENOMENON
  8. AMLOR [Concomitant]
     Indication: HYPERTENSION

REACTIONS (5)
  - ANAEMIA [None]
  - BRAIN NATRIURETIC PEPTIDE INCREASED [None]
  - DYSPNOEA [None]
  - HYPERTHYROIDISM [None]
  - WEIGHT DECREASED [None]
